FAERS Safety Report 5583168-3 (Version None)
Quarter: 2008Q1

REPORT INFORMATION
  Report Type: 
  Country: None (occurrence: None)
  Receive Date: 20080103
  Receipt Date: 20080103
  Transmission Date: 20080703
  Serious: Yes (Life-Threatening, Hospitalization)
  Sender: FDA-Public Use
  Company Number: None

PATIENT
  Age: 48 Year
  Sex: Female

DRUGS (3)
  1. FENTANYL [Suspect]
     Indication: SEDATION
     Dosage: ONCE FOR PROCEDURE
  2. MIDAZOLAM HCL [Suspect]
     Indication: SEDATION
     Dosage: ONCE FOR PROCEDURE
  3. LIDOCAINE [Suspect]
     Indication: LOCAL ANAESTHESIA
     Dosage: ONCE FOR PROCEDURE

REACTIONS (5)
  - AIR EMBOLISM [None]
  - PROCEDURAL COMPLICATION [None]
  - PROCEDURAL HYPOTENSION [None]
  - RESPIRATORY ARREST [None]
  - SEDATION [None]
